FAERS Safety Report 10192217 (Version 1)
Quarter: 2014Q2

REPORT INFORMATION
  Report Type: Spontaneous
  Country: US (occurrence: US)
  Receive Date: 20140523
  Receipt Date: 20140523
  Transmission Date: 20141212
  Serious: No
  Sender: FDA-Public Use
  Company Number: US-AMARIN PHARMA, INC.-2014AMR000025

PATIENT
  Sex: Female
  Weight: 58.11 kg

DRUGS (4)
  1. VASCEPA [Suspect]
     Indication: BLOOD CHOLESTEROL INCREASED
  2. HUMALOG [Concomitant]
     Indication: TYPE 1 DIABETES MELLITUS
  3. VITAMIN B12 [Concomitant]
     Indication: PRODUCT USED FOR UNKNOWN INDICATION
  4. VITAMIN D [Concomitant]
     Indication: PRODUCT USED FOR UNKNOWN INDICATION

REACTIONS (1)
  - Blood glucose increased [Recovered/Resolved]
